FAERS Safety Report 19894865 (Version 1)
Quarter: 2021Q3

REPORT INFORMATION
  Report Type: Spontaneous
  Country: US (occurrence: US)
  Receive Date: 20210928
  Receipt Date: 20210928
  Transmission Date: 20211014
  Serious: Yes (Death)
  Sender: FDA-Public Use
  Company Number: None

PATIENT
  Age: 93 Year
  Sex: Male

DRUGS (1)
  1. ZARXIO [Suspect]
     Active Substance: FILGRASTIM-SNDZ
     Indication: MYELODYSPLASTIC SYNDROME
     Route: 058
     Dates: start: 20210730

REACTIONS (5)
  - Hypercholesterolaemia [None]
  - Pancytopenia [None]
  - Type 2 diabetes mellitus [None]
  - Urinary tract disorder [None]
  - Neutropenia [None]

NARRATIVE: CASE EVENT DATE: 20210928
